FAERS Safety Report 5732542-0 (Version None)
Quarter: 2008Q2

REPORT INFORMATION
  Report Type: 
  Country: None (occurrence: None)
  Receive Date: 20080507
  Receipt Date: 20080428
  Transmission Date: 20081010
  Serious: Yes (Hospitalization)
  Sender: FDA-Public Use
  Company Number: E2090-00385-SPO-NO

PATIENT
  Age: 31 Year
  Sex: Male

DRUGS (6)
  1. ZONEGRAN [Suspect]
     Indication: EPILEPSY
     Dosage: ORAL
     Route: 048
     Dates: start: 20071210, end: 20080107
  2. TRIMONIL RETARD (CARBAMAZEPINE) [Concomitant]
  3. LYRICA [Concomitant]
  4. BURONIL (MELPERONE HYDROCHLORIDE) [Concomitant]
  5. CISORDINOL (CLOPENTHIXOL HYDROCHLORIDE) [Concomitant]
  6. SODIUM CHLORIDE TABLETS (SODIUM CHLORIDE) [Concomitant]

REACTIONS (7)
  - DYSPNOEA [None]
  - HEPATIC ENZYME INCREASED [None]
  - NAUSEA [None]
  - PYREXIA [None]
  - STEVENS-JOHNSON SYNDROME [None]
  - TACHYCARDIA [None]
  - VOMITING [None]
